FAERS Safety Report 8452539-X (Version None)
Quarter: 2012Q2

REPORT INFORMATION
  Report Type: 
  Country: None (occurrence: None)
  Receive Date: 20120620
  Receipt Date: 20120417
  Transmission Date: 20120825
  Serious: No
  Sender: FDA-Public Use
  Company Number: US-VERTEX PHARMACEUTICALS INC.-AE-2012-005425

PATIENT
  Age: 66 Year
  Sex: Male

DRUGS (1)
  1. INCIVEK [Suspect]
     Indication: HEPATITIS C
     Route: 048

REACTIONS (5)
  - HAEMOGLOBIN DECREASED [None]
  - RASH [None]
  - OEDEMA PERIPHERAL [None]
  - SKIN EXFOLIATION [None]
  - FACE OEDEMA [None]
